FAERS Safety Report 9204898 (Version 1)
Quarter: 2013Q2

REPORT INFORMATION
  Report Type: Spontaneous
  Country: GB (occurrence: GB)
  Receive Date: 20130402
  Receipt Date: 20130402
  Transmission Date: 20140414
  Serious: Yes (Disabling)
  Sender: FDA-Public Use
  Company Number: GB-BAYER-2013-036542

PATIENT
  Age: 32 Year
  Sex: Female

DRUGS (1)
  1. NIFEDIPINE [Suspect]
     Dosage: 1 DF, TID
     Route: 048
     Dates: start: 20130311, end: 20130312

REACTIONS (3)
  - Confusional state [Unknown]
  - Disorientation [Unknown]
  - Headache [Recovered/Resolved with Sequelae]
